FAERS Safety Report 8515028-X (Version None)
Quarter: 2012Q3

REPORT INFORMATION
  Report Type: 
  Country: None (occurrence: None)
  Receive Date: 20120717
  Receipt Date: 20120710
  Transmission Date: 20120928
  Serious: Yes (Life-Threatening, Other)
  Sender: FDA-Public Use
  Company Number: FR-ASTRAZENECA-2012SE47537

PATIENT
  Sex: Female

DRUGS (2)
  1. CELOCURINE [Suspect]
     Route: 042
     Dates: start: 19971122, end: 19971122
  2. DIPRIVAN [Suspect]
     Route: 042
     Dates: start: 19971122, end: 19971122

REACTIONS (2)
  - ANAPHYLACTIC SHOCK [None]
  - RENAL FAILURE [None]
